FAERS Safety Report 5541909-5 (Version None)
Quarter: 2007Q4

REPORT INFORMATION
  Report Type: 
  Country: None (occurrence: None)
  Receive Date: 20071205
  Receipt Date: 20071119
  Transmission Date: 20080405
  Serious: Yes (Life-Threatening, Hospitalization, Other)
  Sender: FDA-Public Use
  Company Number: 2007US002837

PATIENT
  Age: 7 Year
  Sex: Male

DRUGS (48)
  1. AMBISOME [Suspect]
     Indication: FUNGAL INFECTION
     Dosage: 41.6 MG, UID/QD, IV DRIP; 83.6 MG, UID/QD, IV DRIP
     Route: 041
     Dates: start: 20071019, end: 20071020
  2. AMBISOME [Suspect]
     Indication: FUNGAL INFECTION
     Dosage: 41.6 MG, UID/QD, IV DRIP; 83.6 MG, UID/QD, IV DRIP
     Route: 041
     Dates: start: 20071022
  3. IMMUNE GLOBULIN (HUMAN) [Suspect]
     Indication: HAEMOLYSIS
     Dates: start: 20071031
  4. SULFAMETHOXAZOLE W/TRIMETHOPRIM (SULFAMETHOXAZOLE, TRIMETHOPRIM) [Concomitant]
  5. FUNGUARD (MICAFUNGIN SODIUM) [Concomitant]
  6. VFEND [Suspect]
  7. ASPARA K (ASPARTATE POTASSIUM) [Concomitant]
  8. ALBUMIN (HUMAN) [Concomitant]
  9. ISOZOL (THIAMYLAL SODIUM) [Concomitant]
  10. DOPAMINE HYDROCHLORIDE [Concomitant]
  11. PANTOL (PANTHENOL) [Concomitant]
  12. FRAGMIN [Concomitant]
  13. ELASPOL (SIVELESTAT) [Concomitant]
  14. SOHVITA (VITAMINS NOS) [Concomitant]
  15. CEFTAZIDIME [Concomitant]
  16. METHYLPREDNISOLONE SODIUM SUCCINATE [Concomitant]
  17. REMINARON (GABEXATE MESILATE) [Concomitant]
  18. DENOSINE (GANCICLOVIR) [Concomitant]
  19. BENAMBAX (PENTAMIDINE) [Concomitant]
  20. ELEMENMIC (MINERAL NOS) [Concomitant]
  21. OMEPRAL [Concomitant]
  22. PN TWIN (AMINO ACIDS NOS, ELECTROLYTES NOS, CARBOHYDRATES NOS) [Concomitant]
  23. MINOCYCLINE HCL [Concomitant]
  24. TARIVID (OFLOXACIN HYDROCHLORIDE) [Concomitant]
  25. HYALEIN (HYALURONATE SODIUM) [Concomitant]
  26. LASIX [Concomitant]
  27. BACTRIM [Concomitant]
  28. BISOLFON (BROMHEXINE HYDROCHLORIDE) [Concomitant]
  29. MEPIVACAINE HCL [Concomitant]
  30. NOVO HEPARIN SODIUM (HEPARIN CALCIUM) [Concomitant]
  31. ZYVOX [Concomitant]
  32. ALBUMINAR (ALBUMIN HUMAN) [Concomitant]
  33. SUBLOOD BS (SUPHLATAST TOSILATE) [Concomitant]
  34. MEROPEN (MEROPENEM) [Concomitant]
  35. FUTHAN (NAFAMOSTAT MESILATE) [Concomitant]
  36. BICARBONAT (SODIUM BICARBONATE) [Concomitant]
  37. HANP [Concomitant]
  38. PRECEDEX [Concomitant]
  39. POTASSIUM CHLORIDE [Concomitant]
  40. GASTROGRAFIN (SODIUM AMIDOTRIZOATE) [Concomitant]
  41. DOBUTAMIN (DOBUTAMINE HYDROCHLORIDE) [Concomitant]
  42. CORETEC (OLPRINONE HYDROCHLORIDE) [Concomitant]
  43. VENOGLOBULIN-I [Concomitant]
  44. CONCLYTE-NA (SODIUM CHLORIDE) [Concomitant]
  45. ALINAMIN F (FURSULTIAMINE) [Concomitant]
  46. ISOSORBIDE DINITRATE [Concomitant]
  47. VECURONIUM BROMIDE [Concomitant]
  48. MILRILA (MILRINONE) [Concomitant]

REACTIONS (26)
  - ASCITES [None]
  - ASPARTATE AMINOTRANSFERASE INCREASED [None]
  - BETA 2 MICROGLOBULIN INCREASED [None]
  - BLOOD ALBUMIN DECREASED [None]
  - BLOOD BILIRUBIN INCREASED [None]
  - BLOOD CHOLESTEROL DECREASED [None]
  - BLOOD LACTATE DEHYDROGENASE INCREASED [None]
  - BLOOD UREA INCREASED [None]
  - C-REACTIVE PROTEIN INCREASED [None]
  - CARDIAC FAILURE [None]
  - CONJUNCTIVITIS [None]
  - DIALYSIS [None]
  - ERYTHEMA [None]
  - HAEMATOCRIT DECREASED [None]
  - HAEMOGLOBIN DECREASED [None]
  - HEPATOMEGALY [None]
  - JAUNDICE [None]
  - MULTI-ORGAN FAILURE [None]
  - PLATELET COUNT DECREASED [None]
  - PNEUMONIA FUNGAL [None]
  - PROTEIN TOTAL DECREASED [None]
  - RED BLOOD CELL COUNT DECREASED [None]
  - RESPIRATORY FAILURE [None]
  - STAPHYLOCOCCAL INFECTION [None]
  - TOTAL CHOLESTEROL/HDL RATIO DECREASED [None]
  - URINE OUTPUT DECREASED [None]
